FAERS Safety Report 12419491 (Version 3)
Quarter: 2016Q3

REPORT INFORMATION
  Report Type: Spontaneous
  Country: US (occurrence: US)
  Receive Date: 20160531
  Receipt Date: 20160815
  Transmission Date: 20161109
  Serious: Yes (Hospitalization)
  Sender: FDA-Public Use
  Company Number: US-ALKERMES INC.-ALK-2016-001359

PATIENT
  Age: 20 Year
  Sex: Male
  Weight: 79.37 kg

DRUGS (2)
  1. VIVITROL [Suspect]
     Active Substance: NALTREXONE
     Dosage: 380 MG, QMO
     Route: 030
     Dates: start: 20160503, end: 20160608
  2. TRAMADOL. [Concomitant]
     Active Substance: TRAMADOL
     Indication: PAIN
     Dosage: UNK
     Route: 065
     Dates: start: 201605

REACTIONS (5)
  - Cardiac operation [Recovered/Resolved]
  - Pain [Unknown]
  - Imprisonment [Not Recovered/Not Resolved]
  - Inhibitory drug interaction [Unknown]
  - Stab wound [Unknown]

NARRATIVE: CASE EVENT DATE: 20160516
